FAERS Safety Report 8293948-1 (Version None)
Quarter: 2012Q2

REPORT INFORMATION
  Report Type: 
  Country: None (occurrence: None)
  Receive Date: 20120418
  Receipt Date: 20120410
  Transmission Date: 20120825
  Serious: Yes (Hospitalization)
  Sender: FDA-Public Use
  Company Number: US-BAYER-2011-083307

PATIENT
  Age: 27 Year
  Sex: Female
  Weight: 107.3 kg

DRUGS (8)
  1. YASMIN [Suspect]
     Indication: POLYCYSTIC OVARIES
  2. FERROUS SULFATE TAB [Concomitant]
     Dosage: 325 MG, TID
  3. TOPROL-XL [Concomitant]
     Dosage: 25 MG, DAILY, UNK
  4. YAZ [Suspect]
     Indication: MENSTRUAL CYCLE MANAGEMENT
  5. YAZ [Suspect]
     Indication: CONTRACEPTION
     Dosage: UNK
     Dates: start: 20061101, end: 20070427
  6. YAZ [Suspect]
     Indication: POLYCYSTIC OVARIES
  7. YASMIN [Suspect]
     Indication: CONTRACEPTION
     Dosage: UNK
     Dates: start: 20061101, end: 20070427
  8. YASMIN [Suspect]
     Indication: MENSTRUAL CYCLE MANAGEMENT

REACTIONS (6)
  - INJURY [None]
  - EMOTIONAL DISTRESS [None]
  - ANXIETY [None]
  - PSYCHOLOGICAL TRAUMA [None]
  - PAIN [None]
  - PULMONARY EMBOLISM [None]
